FAERS Safety Report 8374300-7 (Version None)
Quarter: 2012Q2

REPORT INFORMATION
  Report Type: 
  Country: None (occurrence: None)
  Receive Date: 20120521
  Receipt Date: 20120515
  Transmission Date: 20120825
  Serious: Yes (Hospitalization)
  Sender: FDA-Public Use
  Company Number: PHHO2009TW03011

PATIENT
  Sex: Female
  Weight: 38.5 kg

DRUGS (10)
  1. EVEROLIMUS [Suspect]
     Indication: PANCREATIC NEUROENDOCRINE TUMOUR
     Dosage: 10 MG, QD
     Route: 048
     Dates: start: 20090217, end: 20090316
  2. EVEROLIMUS [Suspect]
     Dosage: 5 MG, UNK
     Route: 048
     Dates: end: 20120123
  3. EVEROLIMUS [Suspect]
     Dosage: 5 MG, UNK
     Dates: start: 20120131
  4. LANSOPRAZOLE [Concomitant]
     Indication: OESOPHAGITIS
  5. APRESOLINE [Concomitant]
     Indication: HYPERTENSION
     Dosage: 150 MG, QD
     Route: 048
     Dates: start: 20111018
  6. STROCAIN [Concomitant]
     Indication: OESOPHAGITIS
     Dosage: UNK
     Dates: start: 20111018
  7. EVEROLIMUS [Suspect]
     Dosage: 5 MG, UNK
     Route: 048
     Dates: start: 20090317, end: 20100628
  8. STROCAIN [Concomitant]
     Indication: DUODENAL ULCER
  9. LANSOPRAZOLE [Concomitant]
     Indication: DUODENAL ULCER
  10. BISOPROLOL FUMARATE [Concomitant]
     Indication: HYPERTENSION
     Dosage: 2.5 MG, QD
     Route: 048
     Dates: start: 20100831

REACTIONS (6)
  - MELAENA [None]
  - DUODENAL ULCER [None]
  - GASTRIC VARICES HAEMORRHAGE [None]
  - PEPTIC ULCER HAEMORRHAGE [None]
  - ANAEMIA [None]
  - GASTROINTESTINAL HAEMORRHAGE [None]
